FAERS Safety Report 19091171 (Version 2)
Quarter: 2021Q2

REPORT INFORMATION
  Report Type: Spontaneous
  Country: US (occurrence: US)
  Receive Date: 20210405
  Receipt Date: 20210406
  Transmission Date: 20210717
  Serious: No
  Sender: FDA-Public Use
  Company Number: US-SA-2021SA096530

PATIENT
  Age: 18 Year
  Sex: Male

DRUGS (1)
  1. LANTUS SOLOSTAR [Suspect]
     Active Substance: INSULIN GLARGINE
     Indication: TYPE 1 DIABETES MELLITUS
     Dosage: UNK
     Route: 065
     Dates: start: 2014

REACTIONS (4)
  - Injection site haemorrhage [Unknown]
  - Product colour issue [Unknown]
  - Incorrect dose administered by device [Unknown]
  - Device leakage [Unknown]
